FAERS Safety Report 17009676 (Version 3)
Quarter: 2019Q4

REPORT INFORMATION
  Report Type: Spontaneous
  Country: US (occurrence: US)
  Receive Date: 20191108
  Receipt Date: 20191226
  Transmission Date: 20200122
  Serious: Yes (Other)
  Sender: FDA-Public Use
  Company Number: US-PFIZER INC-2017298390

PATIENT
  Age: 30 Year
  Sex: Female
  Weight: 108.4 kg

DRUGS (19)
  1. GENOTROPIN [Suspect]
     Active Substance: SOMATROPIN
     Dosage: 10MG, ONCE DAILY
     Dates: start: 199806
  2. PREMARIN [Concomitant]
     Active Substance: ESTROGENS, CONJUGATED
     Dosage: UNK
     Dates: start: 199806
  3. PROMETRIUM [Concomitant]
     Active Substance: PROGESTERONE
     Dosage: UNK
     Dates: start: 199806
  4. DDAVP [Concomitant]
     Active Substance: DESMOPRESSIN ACETATE
     Dosage: UNK
     Dates: start: 199806
  5. GENOTROPIN [Suspect]
     Active Substance: SOMATROPIN
     Dosage: 1 MG, ONCE DAILY
  6. GENOTROPIN [Suspect]
     Active Substance: SOMATROPIN
     Dosage: 1 MG, DAILY (7 DAYS A WEEK)
  7. SYNTHROID [Concomitant]
     Active Substance: LEVOTHYROXINE SODIUM
     Dosage: UNK
  8. GENOTROPIN [Suspect]
     Active Substance: SOMATROPIN
     Dosage: 1 MG, ONCE DAILY
  9. CORTEF [Concomitant]
     Active Substance: HYDROCORTISONE
     Dosage: UNK
     Dates: start: 199806
  10. DDAVP [Concomitant]
     Active Substance: DESMOPRESSIN ACETATE
     Indication: DIABETES INSIPIDUS
     Dosage: 10 UG, DAILY
     Route: 055
     Dates: start: 1997
  11. CORTEF [Concomitant]
     Active Substance: HYDROCORTISONE
     Indication: ADRENAL INSUFFICIENCY
     Dosage: 15 MG, DAILY (10 MG IN THE MORNING AND 5 MG IN THE EVENING)
     Route: 048
     Dates: start: 1997
  12. GENOTROPIN [Suspect]
     Active Substance: SOMATROPIN
     Indication: GROWTH HORMONE DEFICIENCY
     Dosage: 1 MG, ONCE DAILY
  13. GENOTROPIN [Suspect]
     Active Substance: SOMATROPIN
     Dosage: 10MG, ONCE DAILY
     Dates: start: 199806
  14. LEVOTHYROXINE. [Concomitant]
     Active Substance: LEVOTHYROXINE
     Indication: THYROID DISORDER
     Dosage: 175 UG, ONCE DAILY (IN THE MORNING)
     Dates: start: 1997
  15. DDAVP [Concomitant]
     Active Substance: DESMOPRESSIN ACETATE
     Dosage: 10 UG, 2X/DAY
     Route: 055
     Dates: start: 1997
  16. GENOTROPIN [Suspect]
     Active Substance: SOMATROPIN
     Dosage: 10MG, ONCE DAILY
     Dates: start: 199806
  17. LEVOTHYROXINE. [Concomitant]
     Active Substance: LEVOTHYROXINE
     Dosage: UNK
     Dates: start: 199806
  18. PREMARIN [Concomitant]
     Active Substance: ESTROGENS, CONJUGATED
     Indication: OESTROGEN REPLACEMENT THERAPY
     Dosage: 1.25 MG, ONCE DAILY
     Dates: start: 1997
  19. PROMETRIUM [Concomitant]
     Active Substance: PROGESTERONE
     Indication: OESTROGEN REPLACEMENT THERAPY
     Dosage: 200 MG, CYCLIC (ONCE A DAY FOR THE FIRST 10 DAYS OF THE MONTH)
     Dates: start: 2007

REACTIONS (3)
  - Cardiac disorder [Unknown]
  - Device issue [Unknown]
  - Product dose omission [Unknown]

NARRATIVE: CASE EVENT DATE: 201705
